FAERS Safety Report 19650298 (Version 1)
Quarter: 2021Q3

REPORT INFORMATION
  Report Type: Report from Study
  Country: FR (occurrence: FR)
  Receive Date: 20210803
  Receipt Date: 20210803
  Transmission Date: 20211014
  Serious: Yes (Other)
  Sender: FDA-Public Use
  Company Number: FR-ROCHE-2878834

PATIENT
  Age: 53 Year
  Sex: Female

DRUGS (3)
  1. CISPLATINE [Suspect]
     Active Substance: CISPLATIN
     Indication: CERVIX CARCINOMA
     Dosage: LAST DOSE 68 MG OF CISPLATIN RECEIVED ON 28/APR/2020
     Route: 042
     Dates: start: 20200331
  2. ATEZOLIZUMAB. [Suspect]
     Active Substance: ATEZOLIZUMAB
     Indication: CERVIX CARCINOMA
     Dosage: LAST DOSE 1200 MG OF ATEZOLIZUMAB RECEIVED ON 07/MAY/2020
     Route: 042
     Dates: start: 20200507
  3. L?THYROXINE [Concomitant]
     Active Substance: LEVOTHYROXINE
     Dosage: 75 MG/DAY.

REACTIONS (1)
  - Hyperthyroidism [Recovered/Resolved]

NARRATIVE: CASE EVENT DATE: 20200527
